FAERS Safety Report 19763211 (Version 1)
Quarter: 2021Q3

REPORT INFORMATION
  Report Type: Spontaneous
  Country: FR (occurrence: FR)
  Receive Date: 20210830
  Receipt Date: 20210830
  Transmission Date: 20211014
  Serious: Yes (Hospitalization)
  Sender: FDA-Public Use
  Company Number: FR-MYLANLABS-2021M1055235

PATIENT
  Age: 71 Year
  Sex: Male
  Weight: 58 kg

DRUGS (10)
  1. OMEPRAZOLE. [Concomitant]
     Active Substance: OMEPRAZOLE
     Dosage: UNK
  2. GEMCITABINE MYLAN 40 MG/ML, SOLUTION ? DILUER POUR PERFUSION [Suspect]
     Active Substance: GEMCITABINE\GEMCITABINE HYDROCHLORIDE
     Indication: CHOLANGIOCARCINOMA
     Dosage: 1800 MILLIGRAM, C3 J1
     Route: 041
     Dates: start: 20201218, end: 20210203
  3. CISPLATINE ACCORD [Suspect]
     Active Substance: CISPLATIN
     Indication: CHOLANGIOCARCINOMA
     Dosage: 43 MILLIGRAM, C3 J1
     Route: 041
     Dates: start: 20201218, end: 20210203
  4. PHLOROGLUCINOL ACTAVIS [Concomitant]
     Active Substance: PHLOROGLUCINOL
     Dosage: UNK
  5. SOLUPRED                           /00016201/ [Concomitant]
     Active Substance: PREDNISOLONE
     Dosage: UNK
  6. XANAX [Concomitant]
     Active Substance: ALPRAZOLAM
  7. NORSET [Concomitant]
     Active Substance: MIRTAZAPINE
     Dosage: UNK
  8. EUROBIOL                           /00520801/ [Concomitant]
     Dosage: UNK
  9. DEBRIDAT                           /00465202/ [Concomitant]
     Active Substance: TRIMEBUTINE
     Dosage: UNK
  10. PRIMPERAN [Concomitant]
     Active Substance: METOCLOPRAMIDE HYDROCHLORIDE
     Dosage: UNK

REACTIONS (1)
  - Pancreatitis acute [Recovered/Resolved]

NARRATIVE: CASE EVENT DATE: 20210203
